FAERS Safety Report 4433928-7 (Version None)
Quarter: 2004Q3

REPORT INFORMATION
  Report Type: 
  Country: None (occurrence: None)
  Receive Date: 20040825
  Receipt Date: 20040825
  Transmission Date: 20050211
  Serious: Yes (Hospitalization, Other)
  Sender: FDA-Public Use
  Company Number: HQWYE291616AUG04

PATIENT
  Age: 52 Year
  Sex: Female

DRUGS (5)
  1. ADVIL [Suspect]
     Dosage: ORAL
     Route: 048
  2. DAFLON (DIOSMIN,) [Suspect]
     Dosage: ORAL
     Route: 048
  3. IMOVANE (ZOPICLONE, ) [Suspect]
     Dosage: ORAL
     Route: 048
  4. PROZAC [Suspect]
     Dosage: ORAL
     Route: 048
  5. XANAX [Suspect]
     Dosage: ORAL
     Route: 048

REACTIONS (2)
  - ASCITES [None]
  - COLITIS ISCHAEMIC [None]
